FAERS Safety Report 23354830 (Version 2)
Quarter: 2024Q1

REPORT INFORMATION
  Report Type: Spontaneous
  Country: DE (occurrence: DE)
  Receive Date: 20240101
  Receipt Date: 20240304
  Transmission Date: 20240410
  Serious: Yes (Death, Hospitalization)
  Sender: FDA-Public Use
  Company Number: DE-JNJFOC-20231215452

PATIENT
  Age: 9 Decade
  Sex: Male
  Weight: 80 kg

DRUGS (9)
  1. DEXAMETHASONE [Suspect]
     Active Substance: DEXAMETHASONE
     Indication: Plasma cell myeloma
     Route: 065
     Dates: start: 20230615, end: 20230921
  2. REVLIMID [Suspect]
     Active Substance: LENALIDOMIDE
     Indication: Plasma cell myeloma
     Route: 065
     Dates: start: 20230615, end: 20230921
  3. DARATUMUMAB [Suspect]
     Active Substance: DARATUMUMAB
     Indication: Plasma cell myeloma
     Dosage: LAST DOSE BEFORE THE EVENT 640 MG
     Route: 042
     Dates: start: 20230921
  4. DARATUMUMAB [Suspect]
     Active Substance: DARATUMUMAB
     Dosage: LAST DOSE BEFORE THE EVENT 640 MG
     Route: 042
     Dates: start: 20230615, end: 20230921
  5. CHOLECALCIFEROL [Concomitant]
     Active Substance: CHOLECALCIFEROL
     Indication: Product used for unknown indication
     Route: 048
     Dates: start: 20201016
  6. CANDESARTAN [Concomitant]
     Active Substance: CANDESARTAN
     Indication: Product used for unknown indication
     Dosage: 16
     Route: 048
     Dates: start: 20171218
  7. ASPIRIN [Concomitant]
     Active Substance: ASPIRIN
     Indication: Product used for unknown indication
     Route: 048
     Dates: start: 20171218
  8. ATORVASTATIN [Concomitant]
     Active Substance: ATORVASTATIN
     Indication: Product used for unknown indication
     Dosage: 20
     Route: 048
     Dates: start: 20171218
  9. BISOPROLOL [Concomitant]
     Active Substance: BISOPROLOL\BISOPROLOL FUMARATE
     Indication: Product used for unknown indication
     Route: 048
     Dates: start: 20171218

REACTIONS (6)
  - Pancytopenia [Fatal]
  - General physical health deterioration [Fatal]
  - Dementia [Fatal]
  - Plasma cell myeloma [Fatal]
  - Bronchitis [Fatal]
  - Pneumonia [Fatal]
